FAERS Safety Report 26060859 (Version 1)
Quarter: 2025Q4

REPORT INFORMATION
  Report Type: Spontaneous
  Country: CA (occurrence: CA)
  Receive Date: 20251118
  Receipt Date: 20251118
  Transmission Date: 20260118
  Serious: Yes (Other)
  Sender: TEVA
  Company Number: CA-TEVA-VS-3393618

PATIENT
  Age: 10 Year
  Sex: Female

DRUGS (1)
  1. METHOTREXATE [Suspect]
     Active Substance: METHOTREXATE
     Indication: Juvenile idiopathic arthritis
     Dosage: METHOTREXATE SODIUM
     Route: 065

REACTIONS (6)
  - Growth retardation [Unknown]
  - Muscle atrophy [Unknown]
  - Off label use [Unknown]
  - Condition aggravated [Unknown]
  - Drug intolerance [Unknown]
  - Off label use [Unknown]
